FAERS Safety Report 4358322-9 (Version None)
Quarter: 2004Q2

REPORT INFORMATION
  Report Type: 
  Country: None (occurrence: None)
  Receive Date: 20040512
  Receipt Date: 20040512
  Transmission Date: 20050107
  Serious: Yes (Hospitalization)
  Sender: FDA-Public Use
  Company Number: None

PATIENT
  Age: 54 Year
  Sex: Male
  Weight: 115.6672 kg

DRUGS (1)
  1. TENOFOVIR [Suspect]
     Indication: HIV INFECTION
     Dosage: 300 MG PO
     Route: 048
     Dates: start: 20030901, end: 20040201

REACTIONS (9)
  - ACIDOSIS [None]
  - ASTHENIA [None]
  - HYPERKALAEMIA [None]
  - HYPERURICAEMIA [None]
  - MOVEMENT DISORDER [None]
  - NEPHROPATHY [None]
  - RENAL ARTERY STENOSIS [None]
  - RENAL FAILURE ACUTE [None]
  - TREMOR [None]
